FAERS Safety Report 8825581 (Version 1)
Quarter: 2012Q4

REPORT INFORMATION
  Report Type: 
  Country: US (occurrence: US)
  Receive Date: 20121004
  Receipt Date: 20121004
  Transmission Date: 20130627
  Serious: Yes (Other)
  Sender: FDA-Public Use
  Company Number: US-PFIZER INC-2012221304

PATIENT
  Age: 65 Year
  Sex: Male
  Weight: 69.84 kg

DRUGS (10)
  1. XALKORI [Suspect]
     Indication: NON-SMALL CELL LUNG CANCER
     Dosage: 250 mg, 2x/day
     Route: 048
     Dates: start: 20120222
  2. XGEVA [Concomitant]
     Indication: METASTASES TO BONE
     Dosage: UNK
     Dates: start: 20120328
  3. HYDROCORTISONE ACETATE [Concomitant]
     Dosage: QID PRN
     Route: 061
  4. IMODIUM A-D [Concomitant]
     Dosage: 2 mg, 2 PRN
     Route: 048
  5. CALCIUM CARBONATE/COLECALCIFEROL [Concomitant]
     Dosage: 1000mg/800 mg tablet, 3 tablets daily
     Route: 048
  6. FISH OIL [Concomitant]
     Dosage: 300mg/1000mg, 1 capsule once daily
  7. METAMUCIL ^SEARLE^ [Concomitant]
     Dosage: 1 DF, as directed
  8. VITAMIN C [Concomitant]
     Dosage: 1000 mg tablet daily
  9. VITAMIN D3 [Concomitant]
     Dosage: 400 units table daily
  10. ZOLEDRONIC ACID [Concomitant]
     Dosage: UNK
     Dates: start: 20120209, end: 20120307

REACTIONS (8)
  - Liver function test abnormal [Recovered/Resolved]
  - Hypotension [Recovered/Resolved]
  - Visual acuity reduced [Recovered/Resolved]
  - Constipation [Unknown]
  - Hypoaesthesia [Unknown]
  - Paraesthesia [Unknown]
  - Decreased appetite [Unknown]
  - Weight decreased [Unknown]
